FAERS Safety Report 9017346 (Version 1)
Quarter: 2013Q1

REPORT INFORMATION
  Report Type: Spontaneous
  Country: US (occurrence: US)
  Receive Date: 20130117
  Receipt Date: 20130117
  Transmission Date: 20140127
  Serious: Yes (Death, Hospitalization, Other)
  Sender: FDA-Public Use
  Company Number: US-UCBSA-075177

PATIENT
  Age: 45 Year
  Sex: Male

DRUGS (8)
  1. ALPRAZOLAM [Suspect]
     Dosage: INGST + INHAL
  2. CARBON MONOXIDE [Suspect]
     Dosage: INGST + INHAL
  3. ACETAMINOPHEN [Suspect]
     Dosage: INGST + INHAL
  4. DIPHENHYDRAMINE [Suspect]
     Dosage: INGST + INHAL
  5. MECLIZINE [Suspect]
     Dosage: INGST + INHAL
  6. VENLAFAXINE [Suspect]
     Dosage: INGST + INHAL
  7. TOPIRAMATE [Suspect]
     Dosage: INGST + INHAL
  8. BUPROPION [Suspect]
     Dosage: INGST + INHAL

REACTIONS (1)
  - Completed suicide [Fatal]
